FAERS Safety Report 4846839-X (Version None)
Quarter: 2005Q4

REPORT INFORMATION
  Report Type: 
  Country: None (occurrence: None)
  Receive Date: 20051207
  Receipt Date: 20051110
  Transmission Date: 20060501
  Serious: Yes (Hospitalization)
  Sender: FDA-Public Use
  Company Number: PHRM2005FR02967

PATIENT
  Age: 91 Year
  Sex: Female

DRUGS (6)
  1. COTAREG [Suspect]
     Indication: HYPERTENSION
     Dosage: 1 DF, QD
     Route: 048
     Dates: end: 20050729
  2. IXPRIM [Concomitant]
     Route: 048
     Dates: end: 20050729
  3. ACTONEL [Concomitant]
     Dosage: 1 DF, QW
     Route: 048
     Dates: end: 20050729
  4. LOXEN [Concomitant]
     Dosage: 2 DF, QD
     Route: 048
  5. ATARAX [Concomitant]
     Dosage: 25 MG, QD
     Route: 048
     Dates: end: 20050729
  6. BEDELIX [Concomitant]
     Dosage: 1 DF, TID
     Route: 048
     Dates: end: 20050729

REACTIONS (10)
  - BLOOD CREATININE INCREASED [None]
  - CONFUSIONAL STATE [None]
  - DIARRHOEA [None]
  - FALL [None]
  - GENERAL PHYSICAL HEALTH DETERIORATION [None]
  - HYPOCHLORAEMIA [None]
  - HYPOKALAEMIA [None]
  - HYPONATRAEMIA [None]
  - MALAISE [None]
  - SYNCOPE VASOVAGAL [None]
